FAERS Safety Report 17999287 (Version 3)
Quarter: 2020Q3

REPORT INFORMATION
  Report Type: Spontaneous
  Country: JP (occurrence: JP)
  Receive Date: 20200709
  Receipt Date: 20200828
  Transmission Date: 20201103
  Serious: Yes (Other)
  Sender: FDA-Public Use
  Company Number: JP-FERRINGPH-2020FE04274

PATIENT
  Age: 7 Year
  Sex: Female

DRUGS (5)
  1. ELENTAL [Concomitant]
     Active Substance: AMINO ACIDS\CARBOHYDRATES\MINERALS\SOYBEAN OIL\VITAMINS
     Route: 051
  2. DESMOPRESSIN KYOWA [Suspect]
     Active Substance: DESMOPRESSIN
     Indication: DIABETES INSIPIDUS
     Dosage: UNK
     Route: 045
     Dates: start: 2017, end: 201704
  3. MINIRINMELT [Suspect]
     Active Substance: DESMOPRESSIN ACETATE
     Indication: DIABETES INSIPIDUS
     Dosage: 60 UG, 3 TIMES DAILY
     Route: 050
     Dates: start: 201704
  4. VESICARE [Concomitant]
     Active Substance: SOLIFENACIN SUCCINATE
     Dosage: UNK
     Dates: start: 20190405
  5. BUP?4 [Concomitant]
     Active Substance: PROPIVERINE
     Dosage: UNK
     Dates: start: 20190823

REACTIONS (6)
  - Bladder discomfort [Not Recovered/Not Resolved]
  - Hepatic failure [Unknown]
  - Therapeutic response decreased [Recovered/Resolved]
  - Product use issue [Unknown]
  - Nasal obstruction [Unknown]
  - Wrong technique in product usage process [Unknown]

NARRATIVE: CASE EVENT DATE: 2017
